FAERS Safety Report 8910985 (Version 3)
Quarter: 2012Q4

REPORT INFORMATION
  Report Type: 
  Country: GB (occurrence: GB)
  Receive Date: 20121115
  Receipt Date: 20121211
  Transmission Date: 20130627
  Serious: Yes (Disabling, Other)
  Sender: FDA-Public Use
  Company Number: GB-WATSON-2012-19180

PATIENT
  Age: 61 Year
  Sex: Female
  Weight: 97 kg

DRUGS (6)
  1. OMEPRAZOLE (UNKNOWN) [Suspect]
     Indication: GASTROOESOPHAGEAL REFLUX DISEASE
     Dosage: 40 mg unknown
     Route: 065
     Dates: end: 201202
  2. OMEPRAZOLE (UNKNOWN) [Suspect]
     Indication: GASTROOESOPHAGEAL REFLUX DISEASE
     Dosage: 40 mg, unknown
     Route: 065
     Dates: end: 201202
  3. ADCAL D3 [Concomitant]
     Indication: PRODUCT USED FOR UNKNOWN INDICATION
     Dosage: unk
     Route: 065
  4. CETIRIZINE [Concomitant]
     Indication: PRODUCT USED FOR UNKNOWN INDICATION
     Dosage: unk
     Route: 065
  5. SUCRALFATE [Concomitant]
     Indication: PRODUCT USED FOR UNKNOWN INDICATION
     Dosage: unk
     Route: 065
  6. VITAMIN B12                        /00056201/ [Concomitant]
     Indication: PRODUCT USED FOR UNKNOWN INDICATION
     Dosage: unk
     Route: 065

REACTIONS (43)
  - Intestinal haemorrhage [Unknown]
  - Eye haemorrhage [Unknown]
  - Sjogren^s syndrome [Recovering/Resolving]
  - Mouth haemorrhage [Unknown]
  - Haemorrhage [Unknown]
  - Breast discolouration [Recovering/Resolving]
  - Venous insufficiency [Recovering/Resolving]
  - Cellulitis [Unknown]
  - Dry mouth [Recovering/Resolving]
  - Gastrooesophageal reflux disease [Recovering/Resolving]
  - Dry eye [Recovering/Resolving]
  - Arthralgia [Recovering/Resolving]
  - Pain [Recovering/Resolving]
  - Anaemia [Unknown]
  - Confusional state [Unknown]
  - Angioedema [Unknown]
  - Blood pressure decreased [Unknown]
  - Body height decreased [Unknown]
  - Bone density decreased [Unknown]
  - Breast enlargement [Unknown]
  - Dyspnoea [Unknown]
  - Depression [Unknown]
  - Eye disorder [Unknown]
  - Fall [Unknown]
  - Headache [Unknown]
  - Visual acuity reduced [Unknown]
  - Osteopenia [Unknown]
  - Photosensitivity reaction [Unknown]
  - Erythema [Unknown]
  - Skin burning sensation [Unknown]
  - Oedema peripheral [Unknown]
  - Glossodynia [Unknown]
  - Tremor [Unknown]
  - Photopsia [Unknown]
  - Vitamin D deficiency [Unknown]
  - Asthenia [Unknown]
  - Weight decreased [Unknown]
  - Breast disorder female [Unknown]
  - Muscular weakness [Unknown]
  - Angiopathy [Unknown]
  - Visual impairment [Unknown]
  - Vitreous detachment [Unknown]
  - Drug ineffective [Unknown]
